FAERS Safety Report 14119110 (Version 1)
Quarter: 2017Q4

REPORT INFORMATION
  Report Type: Spontaneous
  Country: IT (occurrence: IT)
  Receive Date: 20171024
  Receipt Date: 20171024
  Transmission Date: 20180321
  Serious: Yes (Hospitalization)
  Sender: FDA-Public Use
  Company Number: IT-ROCHE-2010267

PATIENT
  Age: 85 Year
  Sex: Male

DRUGS (6)
  1. RYTMONORM [Concomitant]
     Active Substance: PROPAFENONE
     Dosage: 150 MG- 30 TABLETS
     Route: 065
  2. LAXIPEG [Concomitant]
     Dosage: 9.7 G- 20 X 10 G SACHETS
     Route: 065
  3. RIVOTRIL [Suspect]
     Active Substance: CLONAZEPAM
     Indication: EPILEPSY
     Dosage: 2.5 MG/ML- 10 ML BOTTLE;  PERIOD- 1DAY
     Route: 048
  4. CARDIOASPIRIN [Concomitant]
     Active Substance: ASPIRIN
     Dosage: 100 MG- 30 TABLETS
     Route: 065
  5. QUETIAPINE AUROBINDO [Suspect]
     Active Substance: QUETIAPINE
     Indication: PSYCHOTIC DISORDER
     Dosage: 25 MG- 30 TABLETS IN A PVC/AL BLISTER PACK
     Route: 048
     Dates: start: 20150311, end: 20170724
  6. CALCITRIOL. [Concomitant]
     Active Substance: CALCITRIOL
     Dosage: 0.50 MICROGRAMS - 30 CAPSULES
     Route: 065

REACTIONS (2)
  - Depressed level of consciousness [Recovered/Resolved]
  - Sopor [Recovered/Resolved]

NARRATIVE: CASE EVENT DATE: 20170724
